FAERS Safety Report 11106281 (Version 1)
Quarter: 2015Q2

REPORT INFORMATION
  Report Type: Spontaneous
  Country: US (occurrence: None)
  Receive Date: 20150508
  Receipt Date: 20150508
  Transmission Date: 20150821
  Serious: Yes (Hospitalization)
  Sender: FDA-Public Use
  Company Number: US-001879

PATIENT
  Sex: Male

DRUGS (2)
  1. GATTEX [Suspect]
     Active Substance: TEDUGLUTIDE\WATER
     Indication: SHORT-BOWEL SYNDROME
     Dosage: DF
     Route: 058
     Dates: start: 20150424
  2. SOLUTIONS FOR PARENTERAL NUTRITION [Concomitant]
     Active Substance: AMINO ACIDS\DEXTROSE\ELECTROLYTES NOS

REACTIONS (11)
  - Paraesthesia [None]
  - Paralysis [None]
  - Malaise [None]
  - Drug dose omission [None]
  - Asthenia [None]
  - Injection site pain [None]
  - Injection site bruising [None]
  - Oral disorder [None]
  - Drug ineffective [None]
  - Musculoskeletal stiffness [None]
  - Tongue paralysis [None]

NARRATIVE: CASE EVENT DATE: 2015
